FAERS Safety Report 11003783 (Version 3)
Quarter: 2020Q4

REPORT INFORMATION
  Report Type: Spontaneous
  Country: GB (occurrence: GB)
  Receive Date: 20150409
  Receipt Date: 20201118
  Transmission Date: 20210113
  Serious: Yes (Hospitalization, Other)
  Sender: FDA-Public Use
  Company Number: GB-BRISTOL-MYERS SQUIBB COMPANY-BMS-2015-022290

PATIENT
  Age: 37 Year
  Sex: Female

DRUGS (6)
  1. TENOFOVIR [Suspect]
     Active Substance: TENOFOVIR
     Indication: HIV INFECTION
     Dosage: UNK
     Route: 065
     Dates: start: 200403
  2. LAMIVUDINE. [Suspect]
     Active Substance: LAMIVUDINE
     Indication: HIV INFECTION
     Dosage: UNK
     Route: 065
     Dates: start: 200403
  3. TENOFOVIR [Suspect]
     Active Substance: TENOFOVIR
     Indication: GENITAL HERPES
  4. LAMIVUDINE. [Suspect]
     Active Substance: LAMIVUDINE
     Indication: GENITAL HERPES
  5. EFAVIRENZ. [Suspect]
     Active Substance: EFAVIRENZ
     Indication: HIV INFECTION
     Dosage: UNK
     Route: 065
     Dates: start: 200403
  6. EFAVIRENZ. [Suspect]
     Active Substance: EFAVIRENZ
     Indication: GENITAL HERPES

REACTIONS (3)
  - Immune reconstitution inflammatory syndrome [Unknown]
  - Castleman^s disease [Recovered/Resolved]
  - Angioedema [Recovered/Resolved]

NARRATIVE: CASE EVENT DATE: 2008
